FAERS Safety Report 6530671-5 (Version None)
Quarter: 2010Q1

REPORT INFORMATION
  Report Type: 
  Country: None (occurrence: None)
  Receive Date: 20100108
  Receipt Date: 20081111
  Transmission Date: 20100710
  Serious: No
  Sender: FDA-Public Use
  Company Number: A0756209A

PATIENT

DRUGS (3)
  1. LOVAZA [Suspect]
     Route: 048
  2. TRICOR [Concomitant]
  3. STATINS [Concomitant]

REACTIONS (1)
  - DRUG INEFFECTIVE [None]
